FAERS Safety Report 8096220 (Version 5)
Quarter: 2017Q3

REPORT INFORMATION
  Report Type: Report from Study
  Country: JP (occurrence: JP)
  Receive Date: 20110818
  Receipt Date: 20170927
  Transmission Date: 20171128
  Serious: Yes (Hospitalization, Other)
  Sender: FDA-Public Use
  Company Number: PHHY2010JP76526

PATIENT
  Age: 78 Year
  Sex: Male
  Weight: 57 kg

DRUGS (4)
  1. LOXOPROFEN [Concomitant]
     Active Substance: LOXOPROFEN
     Indication: METASTATIC RENAL CELL CARCINOMA
     Dosage: 60 MG, UNK
     Route: 048
     Dates: start: 20100908, end: 20101013
  2. REBAMIPIDE [Concomitant]
     Active Substance: REBAMIPIDE
     Indication: METASTATIC RENAL CELL CARCINOMA
     Dosage: 100 MG, UNK
     Route: 048
     Dates: start: 20100908, end: 20101013
  3. AFINITOR [Suspect]
     Active Substance: EVEROLIMUS
     Indication: METASTATIC RENAL CELL CARCINOMA
     Dosage: 10 MG, QD
     Route: 048
     Dates: start: 20100811, end: 20100929
  4. AFINITOR [Suspect]
     Active Substance: EVEROLIMUS
     Dosage: 5 MG, QD
     Route: 048
     Dates: start: 20110309, end: 20110727

REACTIONS (28)
  - Lung disorder [Recovered/Resolved]
  - Gait disturbance [Recovering/Resolving]
  - Oedema peripheral [Unknown]
  - Gingivitis [Recovering/Resolving]
  - Hepatitis fulminant [Recovered/Resolved]
  - Cardiomegaly [Recovered/Resolved]
  - Cardiac failure acute [Recovered/Resolved]
  - Orthopnoea [Recovering/Resolving]
  - Dehydration [Unknown]
  - Anaemia [Recovering/Resolving]
  - Urine output decreased [Unknown]
  - Pleural effusion [Recovered/Resolved]
  - Dyspnoea [Recovering/Resolving]
  - Weight increased [Recovering/Resolving]
  - Generalised oedema [Unknown]
  - Inferior vena cava dilatation [Recovering/Resolving]
  - Fatigue [Unknown]
  - Blood alkaline phosphatase increased [Unknown]
  - Ejection fraction decreased [Recovering/Resolving]
  - Right atrial enlargement [Recovering/Resolving]
  - Electrocardiogram T wave abnormal [Unknown]
  - Pulmonary oedema [Recovering/Resolving]
  - Lymphocyte count decreased [Unknown]
  - Pruritus [Recovering/Resolving]
  - Platelet count decreased [Recovered/Resolved]
  - Acute kidney injury [Recovered/Resolved]
  - Cardiac failure congestive [Recovered/Resolved]
  - Stomatitis [Recovering/Resolving]

NARRATIVE: CASE EVENT DATE: 20100825
